FAERS Safety Report 7584973-4 (Version None)
Quarter: 2011Q2

REPORT INFORMATION
  Report Type: 
  Country: None (occurrence: None)
  Receive Date: 20110630
  Receipt Date: 20110627
  Transmission Date: 20111010
  Serious: Yes (Hospitalization, Other)
  Sender: FDA-Public Use
  Company Number: ES-PFIZER INC-2011144056

PATIENT
  Age: 81 Year
  Sex: Female

DRUGS (13)
  1. SYMBICORT [Concomitant]
     Dosage: UNK
     Dates: start: 20081118
  2. ZOCOR [Concomitant]
     Dosage: UNK
     Dates: start: 20081118
  3. ATORVASTATIN CALCIUM [Suspect]
     Dosage: 40 MG, UNK
     Dates: start: 20081206, end: 20081219
  4. APIXABAN [Suspect]
     Indication: THROMBOSIS PROPHYLAXIS
     Dosage: 5 MG, 1X/DAY
     Route: 048
     Dates: start: 20081118, end: 20081204
  5. LISINOPRIL [Concomitant]
     Dosage: UNK
     Dates: start: 20081125
  6. SPIRIVA [Concomitant]
  7. RABEPRAZOLE SODIUM [Concomitant]
  8. LORMETAZEPAM [Concomitant]
     Dosage: UNK
     Dates: start: 20081118
  9. ENOXAPARIN [Suspect]
     Indication: THROMBOSIS PROPHYLAXIS
     Dosage: 40 MG, 1X/DAY
     Route: 058
     Dates: start: 20091118, end: 20021124
  10. MINITRAN [Concomitant]
     Dosage: UNK
     Dates: start: 20081118
  11. FORMOTEROL FUMARATE [Concomitant]
     Dosage: UNK
     Dates: start: 20081125, end: 20081204
  12. NATECAL D [Concomitant]
     Dosage: UNK
     Dates: start: 20081118
  13. ASPIRIN [Concomitant]
     Dosage: UNK
     Dates: start: 20081118

REACTIONS (5)
  - PAPULE [None]
  - ACUTE MYOCARDIAL INFARCTION [None]
  - CARDIAC FAILURE ACUTE [None]
  - ANGINA UNSTABLE [None]
  - ASTHMA [None]
